FAERS Safety Report 4587126-7 (Version None)
Quarter: 2005Q1

REPORT INFORMATION
  Report Type: 
  Country: None (occurrence: None)
  Receive Date: 20050215
  Receipt Date: 20050207
  Transmission Date: 20050727
  Serious: Yes (Death, Other)
  Sender: FDA-Public Use
  Company Number: 2002-09-0023

PATIENT
  Age: 59 Year
  Sex: Male

DRUGS (6)
  1. THALOMID [Suspect]
     Indication: MYELODYSPLASTIC SYNDROME
     Dosage: 100 MG, QHS, ORAL
     Route: 048
     Dates: start: 20011217, end: 20020212
  2. ARSENIC TRIOXIDE (ARSENIC TRIOXIDE) (INJECTION) [Suspect]
     Indication: MYELODYSPLASTIC SYNDROME
     Dosage: 0.25 MG/KG, QD X 4 D/WK FOR 2 WKS. OFF, INTRAVENOUS
     Route: 042
     Dates: start: 20011217, end: 20020212
  3. ARSENIC TRIOXIDE (ARSENIC TRIOXIDE) (INJECTION) [Suspect]
     Indication: MYELODYSPLASTIC SYNDROME
     Dosage: 0.25 MG/KG, QD X 4 D/WK FOR 2 WKS. OFF, INTRAVENOUS
     Route: 042
     Dates: start: 20020506, end: 20020814
  4. RADIATION THERAPY NOS [Suspect]
     Indication: LARYNGEAL CANCER
     Dosage: OTHER
     Route: 050
     Dates: start: 20020202
  5. CORTICOSTEROID NOS (CORTICOSTEROID NOS) [Suspect]
     Indication: DYSPNOEA
  6. PYRIDOXINE (PYRIDOXINE) [Concomitant]

REACTIONS (18)
  - ARRHYTHMIA [None]
  - ATHEROSCLEROSIS [None]
  - CARDIO-RESPIRATORY ARREST [None]
  - CARDIOMEGALY [None]
  - CORONARY ARTERY OCCLUSION [None]
  - FUNGAL INFECTION [None]
  - INJURY ASPHYXIATION [None]
  - ISCHAEMIA [None]
  - LARYNGEAL CANCER STAGE II [None]
  - METASTASES TO PLEURA [None]
  - METASTATIC SQUAMOUS CELL CARCINOMA [None]
  - PLEURAL HAEMORRHAGE [None]
  - PULMONARY CONGESTION [None]
  - PULMONARY EMBOLISM [None]
  - REFUSAL OF TREATMENT BY PATIENT [None]
  - SUDDEN DEATH [None]
  - THERAPEUTIC RESPONSE UNEXPECTED [None]
  - VOLVULUS OF BOWEL [None]
